FAERS Safety Report 6498046-5 (Version None)
Quarter: 2009Q4

REPORT INFORMATION
  Report Type: 
  Country: None (occurrence: None)
  Receive Date: 20091215
  Receipt Date: 20091209
  Transmission Date: 20100525
  Serious: Yes (Death, Other)
  Sender: FDA-Public Use
  Company Number: PHHY2009DE54992

PATIENT
  Age: 23 Year
  Sex: Female

DRUGS (2)
  1. CYCLOSPORINE [Suspect]
     Indication: ACUTE GRAFT VERSUS HOST DISEASE IN SKIN
  2. METHYLPREDNISOLONE [Suspect]
     Indication: ACUTE GRAFT VERSUS HOST DISEASE IN SKIN

REACTIONS (12)
  - ADENOVIRUS INFECTION [None]
  - ANURIA [None]
  - CIRCULATORY COLLAPSE [None]
  - FLANK PAIN [None]
  - KIDNEY ENLARGEMENT [None]
  - LUNG INFILTRATION [None]
  - MULTI-ORGAN FAILURE [None]
  - NEPHRECTOMY [None]
  - PYREXIA [None]
  - RESPIRATORY FAILURE [None]
  - SEPSIS [None]
  - ZYGOMYCOSIS [None]
